FAERS Safety Report 7752096-7 (Version None)
Quarter: 2011Q3

REPORT INFORMATION
  Report Type: 
  Country: None (occurrence: None)
  Receive Date: 20110913
  Receipt Date: 20110831
  Transmission Date: 20111222
  Serious: Yes (Other)
  Sender: FDA-Public Use
  Company Number: 2011SP041334

PATIENT
  Sex: Female

DRUGS (3)
  1. FLUOXETINE HCL [Concomitant]
  2. PEG-INTRON [Suspect]
     Indication: HEPATITIS C
     Dosage: SC
     Route: 058
     Dates: end: 20110822
  3. RIBAVIRIN [Suspect]
     Indication: HEPATITIS C
     Dosage: PO
     Route: 048
     Dates: end: 20110822

REACTIONS (3)
  - BLOOD PRESSURE INCREASED [None]
  - MYALGIA [None]
  - ASTHENIA [None]
